FAERS Safety Report 5375541-3 (Version None)
Quarter: 2007Q2

REPORT INFORMATION
  Report Type: 
  Country: None (occurrence: None)
  Receive Date: 20070629
  Receipt Date: 20070619
  Transmission Date: 20071010
  Serious: Yes (Hospitalization, Other)
  Sender: FDA-Public Use
  Company Number: US-PFIZER INC-2007050653

PATIENT
  Sex: Female
  Weight: 29.545 kg

DRUGS (3)
  1. VFEND [Suspect]
     Indication: PROPHYLAXIS
     Dosage: FREQ:EVERY DAY
     Route: 048
     Dates: start: 20060701, end: 20070601
  2. VFEND [Suspect]
     Indication: ASPERGILLOSIS
     Route: 042
     Dates: start: 20070601
  3. DRUG, UNSPECIFIED [Concomitant]

REACTIONS (7)
  - ASPERGILLOSIS [None]
  - DYSPEPSIA [None]
  - DYSPNOEA [None]
  - GASTROINTESTINAL TUBE INSERTION [None]
  - GASTROOESOPHAGEAL REFLUX DISEASE [None]
  - OBLITERATIVE BRONCHIOLITIS [None]
  - OXYGEN SATURATION DECREASED [None]
